FAERS Safety Report 16491900 (Version 1)
Quarter: 2019Q2

REPORT INFORMATION
  Report Type: Spontaneous
  Country: GB (occurrence: GB)
  Receive Date: 20190628
  Receipt Date: 20190628
  Transmission Date: 20190711
  Serious: Yes (Other)
  Sender: FDA-Public Use
  Company Number: GB-TEVA-2019-GB-1070179

PATIENT
  Age: 48 Year
  Sex: Female
  Weight: 68.03 kg

DRUGS (2)
  1. NAPROXEN. [Suspect]
     Active Substance: NAPROXEN
     Indication: BACK PAIN
     Dosage: 1000 MILLIGRAM DAILY;
     Route: 048
     Dates: start: 20190425, end: 20190520
  2. IBUPROFEN. [Concomitant]
     Active Substance: IBUPROFEN
     Dosage: STOPPED WHEN NAPROXEN WAS STARTED.
     Dates: end: 201905

REACTIONS (6)
  - Malaise [Recovered/Resolved]
  - Nightmare [Recovered/Resolved]
  - Malaise [Recovered/Resolved]
  - Headache [Recovered/Resolved]
  - Poor quality sleep [Recovered/Resolved]
  - Confusional state [Recovered/Resolved]

NARRATIVE: CASE EVENT DATE: 20190429
